FAERS Safety Report 18300713 (Version 1)
Quarter: 2020Q3

REPORT INFORMATION
  Report Type: Spontaneous
  Country: US (occurrence: US)
  Receive Date: 20200923
  Receipt Date: 20200923
  Transmission Date: 20201103
  Serious: Yes (Life-Threatening, Hospitalization)
  Sender: FDA-Public Use
  Company Number: None

PATIENT
  Age: 55 Year
  Sex: Male
  Weight: 177 kg

DRUGS (1)
  1. WARFARIN (WARFARIN NA (EXELAN) 10MG TAB) [Suspect]
     Active Substance: WARFARIN SODIUM
     Indication: PULMONARY EMBOLISM
     Dates: start: 20200420, end: 20200826

REACTIONS (8)
  - Postoperative wound infection [None]
  - Meningitis [None]
  - Subdural abscess [None]
  - Subdural haematoma [None]
  - Haemorrhage intracranial [None]
  - Mental status changes [None]
  - Seizure [None]
  - COVID-19 [None]

NARRATIVE: CASE EVENT DATE: 20200826
